FAERS Safety Report 8604625-9 (Version None)
Quarter: 2012Q3

REPORT INFORMATION
  Report Type: 
  Country: None (occurrence: None)
  Receive Date: 20120820
  Receipt Date: 20120815
  Transmission Date: 20120928
  Serious: Yes (Hospitalization)
  Sender: FDA-Public Use
  Company Number: PHHY2011CA105772

PATIENT
  Sex: Male

DRUGS (4)
  1. ABILIFY [Concomitant]
  2. CLOZARIL [Suspect]
     Indication: SCHIZOPHRENIA
     Dosage: UNK
     Dates: start: 20111013, end: 20120612
  3. CLOZARIL [Suspect]
     Indication: PARKINSON'S DISEASE
  4. KAMADRIN [Concomitant]

REACTIONS (2)
  - BRONCHITIS VIRAL [None]
  - PNEUMONIA [None]
